FAERS Safety Report 5682241-9 (Version None)
Quarter: 2008Q1

REPORT INFORMATION
  Report Type: 
  Country: None (occurrence: None)
  Receive Date: 20080325
  Receipt Date: 20080317
  Transmission Date: 20080703
  Serious: Yes (Death, Hospitalization)
  Sender: FDA-Public Use
  Company Number: 6041560

PATIENT
  Age: 87 Year
  Sex: Female

DRUGS (10)
  1. BISOPROLOL FUMARATE [Suspect]
     Indication: DRUG USE FOR UNKNOWN INDICATION
     Route: 048
  2. PREVISCAN (TABLET) (FLUINDIONE) [Suspect]
     Indication: DRUG USE FOR UNKNOWN INDICATION
     Dosage: (1/4 EVEN DATES AND 1/2 ODD DATES)
     Route: 048
  3. ALLOPURINOL [Suspect]
     Indication: DRUG USE FOR UNKNOWN INDICATION
     Route: 048
  4. PRAVASTATIN SODIUM [Suspect]
     Indication: DRUG USE FOR UNKNOWN INDICATION
     Route: 048
  5. TOPALGIC (TRAMADOL  SERTRALINE) [Suspect]
     Indication: DRUG USE FOR UNKNOWN INDICATION
  6. ZOLOFT [Suspect]
     Indication: DRUG USE FOR UNKNOWN INDICATION
     Route: 048
  7. PREDNISOLONE [Suspect]
  8. FUROSEMIDE [Suspect]
     Indication: DRUG USE FOR UNKNOWN INDICATION
     Route: 048
  9. FORLAX (POWDER FOR ORAL SOLUTION) [Suspect]
     Indication: DRUG USE FOR UNKNOWN INDICATION
     Route: 048
  10. ESOMEPRAZOLE MAGNESIUM [Suspect]
     Indication: DRUG USE FOR UNKNOWN INDICATION

REACTIONS (12)
  - BRAIN HERNIATION [None]
  - CEREBRAL HAEMORRHAGE [None]
  - COMA [None]
  - FALL [None]
  - HAEMATOMA [None]
  - HUMERUS FRACTURE [None]
  - INTERNATIONAL NORMALISED RATIO INCREASED [None]
  - MUSCULOSKELETAL DISORDER [None]
  - PALLOR [None]
  - SUBDURAL HAEMATOMA [None]
  - TONIC CLONIC MOVEMENTS [None]
  - TRAUMATIC HAEMATOMA [None]
